FAERS Safety Report 16390747 (Version 4)
Quarter: 2021Q2

REPORT INFORMATION
  Report Type: Report from Study
  Country: BR (occurrence: BR)
  Receive Date: 20190604
  Receipt Date: 20210622
  Transmission Date: 20210716
  Serious: Yes (Other)
  Sender: FDA-Public Use
  Company Number: PHHY2019BR127615

PATIENT
  Age: 57 Year
  Sex: Female

DRUGS (8)
  1. SERTRALIN [Suspect]
     Active Substance: SERTRALINE HYDROCHLORIDE
     Indication: ANXIETY
     Dosage: 1 DF, QD (AT NIGHT)
     Route: 065
  2. VITAMIN D [Concomitant]
     Active Substance: VITAMIN D NOS
     Indication: PAIN
     Dosage: UNK
     Route: 065
  3. DOLAMIN [Concomitant]
     Indication: PAIN
     Dosage: UNK
     Route: 065
  4. COSENTYX [Suspect]
     Active Substance: SECUKINUMAB
     Dosage: UNK, Q2W (EVERY 15 DAYS)
     Route: 065
  5. COSENTYX [Suspect]
     Active Substance: SECUKINUMAB
     Dosage: UNK, 1 PEN (EVERY 15 DAYS)
     Route: 065
     Dates: start: 202101
  6. COSENTYX [Suspect]
     Active Substance: SECUKINUMAB
     Indication: ANKYLOSING SPONDYLITIS
     Dosage: UNK
     Route: 065
     Dates: start: 20180927
  7. COSENTYX [Suspect]
     Active Substance: SECUKINUMAB
     Dosage: UNK, 1 PEN (EVERY 15 DAYS)
     Route: 065
     Dates: start: 202101
  8. COSENTYX [Suspect]
     Active Substance: SECUKINUMAB
     Dosage: UNK, 1 PEN (EVERY 15 DAYS)
     Route: 065
     Dates: start: 20210605

REACTIONS (17)
  - Arrhythmia [Recovering/Resolving]
  - Spinal pain [Not Recovered/Not Resolved]
  - Anxiety [Recovering/Resolving]
  - Visual impairment [Unknown]
  - Blood creatinine abnormal [Recovering/Resolving]
  - Skin exfoliation [Recovering/Resolving]
  - Pneumonia [Unknown]
  - Dizziness [Unknown]
  - Psoriasis [Recovering/Resolving]
  - Sensitivity to weather change [Not Recovered/Not Resolved]
  - Off label use [Not Recovered/Not Resolved]
  - Pain [Not Recovered/Not Resolved]
  - Glucose tolerance impaired [Not Recovered/Not Resolved]
  - Hypertension [Recovering/Resolving]
  - Insomnia [Recovering/Resolving]
  - Ocular hyperaemia [Unknown]
  - Pain in extremity [Not Recovered/Not Resolved]

NARRATIVE: CASE EVENT DATE: 202012
